FAERS Safety Report 12898240 (Version 3)
Quarter: 2016Q4

REPORT INFORMATION
  Report Type: Spontaneous
  Country: IT (occurrence: IT)
  Receive Date: 20161031
  Receipt Date: 20161130
  Transmission Date: 20170207
  Serious: Yes (Hospitalization)
  Sender: FDA-Public Use
  Company Number: IT-ABBVIE-16P-083-1765890-00

PATIENT
  Age: 72 Year
  Sex: Female
  Weight: 60 kg

DRUGS (3)
  1. CALCITRIOL. [Suspect]
     Active Substance: CALCITRIOL
     Indication: CHRONIC KIDNEY DISEASE
     Route: 048
     Dates: start: 20160101, end: 20161017
  2. CALCIUM CARBONATE. [Suspect]
     Active Substance: CALCIUM CARBONATE
     Indication: CHRONIC KIDNEY DISEASE
     Route: 048
     Dates: start: 20160101, end: 20161017
  3. CHOLECALCIFEROL [Suspect]
     Active Substance: CHOLECALCIFEROL
     Indication: CHRONIC KIDNEY DISEASE
     Route: 048
     Dates: start: 20160101, end: 20161017

REACTIONS (3)
  - Hypercalcaemia [Recovered/Resolved]
  - Presyncope [Recovered/Resolved]
  - Confusional state [Recovered/Resolved]

NARRATIVE: CASE EVENT DATE: 20161018
